FAERS Safety Report 8822134 (Version 1)
Quarter: 2012Q4

REPORT INFORMATION
  Report Type: 
  Country: US (occurrence: US)
  Receive Date: 20121003
  Receipt Date: 20121003
  Transmission Date: 20130627
  Serious: Yes (Hospitalization, Other)
  Sender: FDA-Public Use
  Company Number: US-SANOFI-AVENTIS-2012SA070875

PATIENT
  Sex: Female

DRUGS (3)
  1. LANTUS [Suspect]
     Dosage: Dose:80 unit(s)
     Route: 058
  2. HUMALOG [Suspect]
     Route: 058
  3. NOVOLOG [Concomitant]

REACTIONS (4)
  - Localised infection [Unknown]
  - Wound [Unknown]
  - Cataract [Unknown]
  - Blindness [Unknown]
